FAERS Safety Report 14365159 (Version 1)
Quarter: 2018Q1

REPORT INFORMATION
  Report Type: Spontaneous
  Country: US (occurrence: US)
  Receive Date: 20180108
  Receipt Date: 20180108
  Transmission Date: 20180509
  Serious: No
  Sender: FDA-Public Use
  Company Number: US-ROCHE-1935581

PATIENT
  Sex: Female
  Weight: 86.3 kg

DRUGS (4)
  1. ACTIVASE [Suspect]
     Active Substance: ALTEPLASE
     Indication: VISION BLURRED
  2. ACTIVASE [Suspect]
     Active Substance: ALTEPLASE
     Indication: HEADACHE
     Dosage: UNKNOWN MG WERE ADMINISTERED PRIOR TO PT TRANSFER
     Route: 041
     Dates: start: 20170513
  3. ACTIVASE [Suspect]
     Active Substance: ALTEPLASE
     Indication: HYPOAESTHESIA
  4. ACTIVASE [Suspect]
     Active Substance: ALTEPLASE
     Indication: ISCHAEMIC STROKE
     Route: 040
     Dates: start: 20170513, end: 20170513

REACTIONS (1)
  - Pregnancy [Unknown]
